FAERS Safety Report 24194466 (Version 1)
Quarter: 2024Q3

REPORT INFORMATION
  Report Type: Spontaneous
  Country: VN (occurrence: VN)
  Receive Date: 20240809
  Receipt Date: 20240809
  Transmission Date: 20241017
  Serious: Yes (Hospitalization, Other)
  Sender: BAYER
  Company Number: VN-BAYER-2024A111990

PATIENT
  Age: 50 Year
  Sex: Male

DRUGS (1)
  1. ULTRAVIST [Suspect]
     Active Substance: IOPROMIDE
     Indication: Computerised tomogram heart
     Dosage: UNK, ONCE
     Route: 042
     Dates: start: 20240727, end: 20240727

REACTIONS (8)
  - Anaphylactic reaction [None]
  - Blood pressure decreased [None]
  - Agitation [None]
  - Heart rate increased [None]
  - Pruritus [None]
  - Eye swelling [None]
  - Erythema [None]
  - Irritability [None]

NARRATIVE: CASE EVENT DATE: 20240727
